FAERS Safety Report 5654265-9 (Version None)
Quarter: 2008Q1

REPORT INFORMATION
  Report Type: 
  Country: None (occurrence: None)
  Receive Date: 20080201
  Receipt Date: 20060131
  Transmission Date: 20080703
  Serious: No
  Sender: FDA-Public Use
  Company Number: 20084561

PATIENT
  Sex: Male

DRUGS (1)
  1. LIORESAL [Suspect]
     Indication: MUSCLE SPASTICITY
     Dosage: MCG, DAILY, INTRATHECAL
     Route: 037

REACTIONS (2)
  - INJURY [None]
  - RASH [None]
